FAERS Safety Report 4388164-X (Version None)
Quarter: 2004Q2

REPORT INFORMATION
  Report Type: 
  Country: None (occurrence: None)
  Receive Date: 20040625
  Receipt Date: 20040616
  Transmission Date: 20050107
  Serious: No
  Sender: FDA-Public Use
  Company Number: TPA2004A00681

PATIENT
  Age: 61 Year
  Sex: Female
  Weight: 104.3273 kg

DRUGS (7)
  1. ACTOS [Suspect]
     Indication: DIABETES MELLITUS NON-INSULIN-DEPENDENT
     Dosage: 45 MG, 1 IN 1 D, PER ORAL
     Route: 048
     Dates: start: 20031124
  2. STARLIX(NATEGLINIDE) (120 MILLIGRAM) [Concomitant]
  3. DEMADEX [Suspect]
  4. TENORMIN (ATENOLOL) 925 MILLIGRAM) [Concomitant]
  5. ZOCOR (SIMVASTATIN) (40 MILLIGRAM) [Concomitant]
  6. ASPIRIN (ACETYLSALICYLIC ACID) (81 MILLIGRAM) [Concomitant]
  7. TOPROL XL (METOPROLOL SUCCINATE) (50 MILLIGRAM) [Concomitant]

REACTIONS (5)
  - BLOOD GLUCOSE INCREASED [None]
  - BLOOD PRESSURE SYSTOLIC INCREASED [None]
  - CHEST PAIN [None]
  - HYPERTENSION [None]
  - WEIGHT INCREASED [None]
